FAERS Safety Report 7433288-3 (Version None)
Quarter: 2011Q2

REPORT INFORMATION
  Report Type: 
  Country: None (occurrence: None)
  Receive Date: 20110422
  Receipt Date: 20110416
  Transmission Date: 20111010
  Serious: No
  Sender: FDA-Public Use
  Company Number: US-B.I. PHARMACEUTICALS,INC./RIDGEFIELD-2011-BP-11006BP

PATIENT
  Sex: Female

DRUGS (9)
  1. ALTACE [Concomitant]
     Indication: HYPERTENSION
     Dosage: 10 MG
     Route: 048
  2. CALCIUM/POTASSIUM SUPPLEMENT [Concomitant]
     Indication: SUPPLEMENTATION THERAPY
     Route: 048
  3. VYTORIN [Concomitant]
     Indication: BLOOD CHOLESTEROL INCREASED
     Route: 048
  4. ACTONEL [Concomitant]
     Indication: OSTEOPOROSIS
     Route: 048
  5. HYDROCHLOROTHIAZIDE [Concomitant]
     Indication: HYPERTENSION
     Dosage: 12.5 MG
     Route: 048
  6. SOTALOL [Concomitant]
     Indication: ATRIAL FIBRILLATION
     Dosage: 120 MG
     Route: 048
  7. LEVOXYL [Concomitant]
     Indication: THYROID DISORDER
     Route: 048
  8. VITAMIN D [Concomitant]
     Indication: VITAMIN D DECREASED
     Route: 048
  9. PRADAXA [Suspect]
     Dosage: 300 MG
     Dates: start: 20110301

REACTIONS (3)
  - CHEST PAIN [None]
  - DYSPEPSIA [None]
  - OESOPHAGEAL SPASM [None]
